FAERS Safety Report 11269362 (Version 2)
Quarter: 2015Q3

REPORT INFORMATION
  Report Type: Spontaneous
  Country: DE (occurrence: None)
  Receive Date: 20150710
  Receipt Date: 20150804
  Transmission Date: 20151125
  Serious: Yes (Other)
  Sender: FDA-Public Use
  Company Number: COL_20083_2015

PATIENT
  Age: 52 Year
  Sex: Female

DRUGS (2)
  1. ELMEX [Suspect]
     Active Substance: DECTAFLUR\OLAFLUR\SODIUM FLUORIDE
     Indication: DENTAL CLEANING
     Dosage: (APPLIED FOR 15 MINUTES/ONCE/ ORAL)
     Route: 048
     Dates: start: 20150616, end: 20150616
  2. CETIRIZINE [Concomitant]
     Active Substance: CETIRIZINE HYDROCHLORIDE

REACTIONS (5)
  - Cough [None]
  - Pharyngeal oedema [None]
  - Local swelling [None]
  - Dyspnoea [None]
  - Throat tightness [None]

NARRATIVE: CASE EVENT DATE: 20150616
